FAERS Safety Report 5895337-3 (Version None)
Quarter: 2008Q2

REPORT INFORMATION
  Report Type: 
  Country: None (occurrence: None)
  Receive Date: 20080627
  Receipt Date: 20080627
  Transmission Date: 20081010
  Serious: Yes (Disabling)
  Sender: FDA-Public Use
  Company Number: None

PATIENT
  Sex: Female
  Weight: 49.8957 kg

DRUGS (1)
  1. LIPODISSOLVE [Suspect]

REACTIONS (2)
  - INJECTION SITE SCAR [None]
  - INJECTION SITE SWELLING [None]
